FAERS Safety Report 4316157-7 (Version None)
Quarter: 2004Q1

REPORT INFORMATION
  Report Type: 
  Country: None (occurrence: None)
  Receive Date: 20040312
  Receipt Date: 20040305
  Transmission Date: 20041129
  Serious: Yes (Death)
  Sender: FDA-Public Use
  Company Number: PHBS2004BR03146

PATIENT
  Age: 69 Year
  Sex: Female

DRUGS (2)
  1. FORASEQ [Suspect]
     Indication: BRONCHITIS
     Dosage: 12 FORM / 200 BUDE UG/BID
     Dates: end: 20040113
  2. METICORTEN [Concomitant]

REACTIONS (4)
  - DIABETES MELLITUS [None]
  - HYPERTENSIVE CARDIOMYOPATHY [None]
  - LUNG DISORDER [None]
  - SYNCOPE [None]
